FAERS Safety Report 5956963-6 (Version None)
Quarter: 2008Q4

REPORT INFORMATION
  Report Type: 
  Country: None (occurrence: None)
  Receive Date: 20081118
  Receipt Date: 20081113
  Transmission Date: 20090506
  Serious: Yes (Hospitalization)
  Sender: FDA-Public Use
  Company Number: NL-ASTRAZENECA-2008AC02957

PATIENT
  Age: 12734 Day
  Sex: Female
  Weight: 55 kg

DRUGS (4)
  1. ENTOCORT EC [Suspect]
     Indication: COLITIS COLLAGENOUS
     Route: 048
     Dates: start: 20010101
  2. ENTOCORT EC [Suspect]
     Dosage: DOSE REDUCED
     Route: 048
  3. LANTUS [Concomitant]
     Dosage: 100E/ML PATROON 3 ML
     Route: 058
     Dates: start: 19990101, end: 20060101
  4. SELOKEEN ZOC [Concomitant]
     Route: 048
     Dates: start: 19990101

REACTIONS (1)
  - HYPERGLYCAEMIA [None]
